FAERS Safety Report 25728675 (Version 1)
Quarter: 2025Q3

REPORT INFORMATION
  Report Type: Spontaneous
  Country: EU (occurrence: EU)
  Receive Date: 20250826
  Receipt Date: 20250826
  Transmission Date: 20251020
  Serious: Yes (Hospitalization)
  Sender: UCB
  Company Number: EU-UCBSA-2025051284

PATIENT
  Sex: Female

DRUGS (1)
  1. BIMZELX [Suspect]
     Active Substance: BIMEKIZUMAB-BKZX
     Indication: Psoriasis
     Route: 058
     Dates: start: 20250304

REACTIONS (3)
  - Skin weeping [Recovering/Resolving]
  - Peripheral swelling [Recovering/Resolving]
  - Necrosis [Recovering/Resolving]
